FAERS Safety Report 7190754-6 (Version None)
Quarter: 2010Q4

REPORT INFORMATION
  Report Type: 
  Country: None (occurrence: None)
  Receive Date: 20101223
  Receipt Date: 20101213
  Transmission Date: 20110411
  Serious: Yes (Life-Threatening, Hospitalization, Other)
  Sender: FDA-Public Use
  Company Number: DE-MYLANLABS-2010S1019637

PATIENT
  Age: 82 Year
  Sex: Female
  Weight: 93 kg

DRUGS (3)
  1. IBUPROFEN [Suspect]
     Indication: PRODUCT USED FOR UNKNOWN INDICATION
     Dosage: 2X1 TABLET AT 600 MG DAILY PER OS
     Route: 048
     Dates: start: 20100810, end: 20100814
  2. NOVODIGAL [Suspect]
     Indication: PRODUCT USED FOR UNKNOWN INDICATION
     Route: 048
     Dates: start: 20090427, end: 20100814
  3. ATACAND [Suspect]
     Indication: PRODUCT USED FOR UNKNOWN INDICATION
     Route: 048
     Dates: start: 20100427, end: 20100814

REACTIONS (3)
  - BRADYCARDIA [None]
  - HYPERKALAEMIA [None]
  - RENAL FAILURE ACUTE [None]
